FAERS Safety Report 9267261 (Version 3)
Quarter: 2013Q3

REPORT INFORMATION
  Report Type: Spontaneous
  Country: JP (occurrence: JP)
  Receive Date: 20130502
  Receipt Date: 20130828
  Transmission Date: 20140515
  Serious: Yes (Death, Hospitalization)
  Sender: FDA-Public Use
  Company Number: JP-BAYER-2013-051559

PATIENT
  Age: 77 Year
  Sex: Male
  Weight: 58 kg

DRUGS (8)
  1. NEXAVAR [Suspect]
     Indication: HEPATOCELLULAR CARCINOMA
     Dosage: 400 MG, BID
     Route: 048
     Dates: start: 20130123, end: 20130419
  2. FAMOSTAGINE [Concomitant]
     Dosage: DAILY DOSE 40 MG
     Route: 048
  3. GASTROM [Concomitant]
     Dosage: DAILY DOSE 3 G
     Route: 048
  4. MAGMITT [Concomitant]
     Dosage: DAILY DOSE 990 MG
     Route: 048
  5. URSO [Concomitant]
     Dosage: DAILY DOSE 300 MG
     Route: 048
  6. GLYCYRON [AMINOACETIC ACID,DL-METHIONINE,GLYCYRRHIZIC ACID] [Concomitant]
     Dosage: DAILY DOSE 6 DF
     Route: 048
  7. AMLODIPINE [Concomitant]
     Dosage: DAILY DOSE 2.5 MG
     Route: 048
  8. CALONAL [Concomitant]
     Dosage: DAILY DOSE 1800 MG
     Route: 048

REACTIONS (10)
  - Hepatic encephalopathy [Not Recovered/Not Resolved]
  - Depressed level of consciousness [Not Recovered/Not Resolved]
  - Colitis ischaemic [Fatal]
  - Enterocolitis haemorrhagic [Fatal]
  - Pyrexia [Fatal]
  - Melaena [Fatal]
  - Anaemia [Fatal]
  - Hepatic function abnormal [None]
  - Blood pressure increased [None]
  - Haematemesis [Fatal]
